FAERS Safety Report 17275948 (Version 1)
Quarter: 2020Q1

REPORT INFORMATION
  Report Type: Spontaneous
  Country: US (occurrence: US)
  Receive Date: 20200116
  Receipt Date: 20200116
  Transmission Date: 20200409
  Serious: Yes (Death, Hospitalization, Other)
  Sender: FDA-Public Use
  Company Number: US-APOTEX-2020AP005912

PATIENT
  Age: 32 Year
  Sex: Female

DRUGS (12)
  1. TRAMADOL. [Suspect]
     Active Substance: TRAMADOL
     Indication: PRODUCT USED FOR UNKNOWN INDICATION
     Dosage: UNK, ACUTE ON CHRONIC EXPOSURE
     Route: 048
  2. DULOXETINE. [Suspect]
     Active Substance: DULOXETINE
     Indication: PRODUCT USED FOR UNKNOWN INDICATION
     Dosage: UNK, ACUTE ON CHRONIC EXPOSURE
     Route: 048
  3. CYCLOBENZAPRINE. [Suspect]
     Active Substance: CYCLOBENZAPRINE
     Dosage: UNK, ACUTE ON CHRONIC EXPOSURE
     Route: 065
  4. TOPIRAMATE. [Suspect]
     Active Substance: TOPIRAMATE
     Indication: PRODUCT USED FOR UNKNOWN INDICATION
     Dosage: UNK, ACUTE ON CHRONIC EXPOSURE
     Route: 065
  5. TOPIRAMATE. [Suspect]
     Active Substance: TOPIRAMATE
     Dosage: UNK, ACUTE ON CHRONIC EXPOSURE
     Route: 048
  6. DULOXETINE. [Suspect]
     Active Substance: DULOXETINE
     Dosage: UNK, ACUTE ON CHRONIC EXPOSURE
     Route: 065
  7. CYCLOBENZAPRINE. [Suspect]
     Active Substance: CYCLOBENZAPRINE
     Indication: PRODUCT USED FOR UNKNOWN INDICATION
     Dosage: UNK, ACUTE ON CHRONIC EXPOSURE
     Route: 048
  8. AMPHETAMINE [Suspect]
     Active Substance: AMPHETAMINE
     Indication: PRODUCT USED FOR UNKNOWN INDICATION
     Dosage: UNK, ACUTE ON CHRONIC EXPOSURE
     Route: 048
  9. LEVETIRACETAM. [Suspect]
     Active Substance: LEVETIRACETAM
     Dosage: UNK, ACUTE ON CHRONIC EXPOSURE
     Route: 048
  10. LEVETIRACETAM. [Suspect]
     Active Substance: LEVETIRACETAM
     Indication: PRODUCT USED FOR UNKNOWN INDICATION
     Dosage: UNK, ACUTE ON CHRONIC EXPOSURE
     Route: 065
  11. TRAMADOL. [Suspect]
     Active Substance: TRAMADOL
     Dosage: UNK,ACUTE ON CHRONIC EXPOSURE
     Route: 065
  12. AMPHETAMINE [Suspect]
     Active Substance: AMPHETAMINE
     Dosage: UNK, ACUTE ON CHRONIC EXPOSURE
     Route: 065

REACTIONS (1)
  - Completed suicide [Fatal]

NARRATIVE: CASE EVENT DATE: 2018
